FAERS Safety Report 4301890-3 (Version None)
Quarter: 2004Q1

REPORT INFORMATION
  Report Type: 
  Country: None (occurrence: None)
  Receive Date: 20040223
  Receipt Date: 20030603
  Transmission Date: 20041129
  Serious: Yes (Hospitalization)
  Sender: FDA-Public Use
  Company Number: WAES 0306FRA00016

PATIENT
  Age: 81 Year
  Sex: Female
  Weight: 77 kg

DRUGS (4)
  1. AMLODIPINE MALEATE [Suspect]
     Indication: HYPERTENSION
     Route: 048
     Dates: start: 20030331, end: 20030515
  2. CHONDROITIN SULFATE SODIUM [Concomitant]
     Route: 048
  3. VASERETIC [Suspect]
     Indication: HYPERTENSION
     Route: 048
  4. VIOXX [Suspect]
     Indication: LOCALISED OSTEOARTHRITIS
     Route: 048
     Dates: start: 20020715, end: 20030509

REACTIONS (2)
  - PURPURA [None]
  - SKIN ULCER [None]
